FAERS Safety Report 18221805 (Version 2)
Quarter: 2023Q1

REPORT INFORMATION
  Report Type: Spontaneous
  Country: CA (occurrence: None)
  Receive Date: 20200902
  Receipt Date: 20230317
  Transmission Date: 20230418
  Serious: Yes (Hospitalization, Other)
  Sender: FDA-Public Use
  Company Number: 2020SF09097

PATIENT
  Age: 35 Year
  Sex: Male

DRUGS (39)
  1. QUETIAPINE [Suspect]
     Active Substance: QUETIAPINE
     Indication: Bipolar disorder
     Route: 048
  2. QUETIAPINE [Suspect]
     Active Substance: QUETIAPINE
     Indication: Psychotic disorder
     Route: 048
  3. QUETIAPINE [Suspect]
     Active Substance: QUETIAPINE
     Indication: Bipolar disorder
     Route: 048
  4. QUETIAPINE [Suspect]
     Active Substance: QUETIAPINE
     Indication: Psychotic disorder
     Route: 048
  5. ABILIFY [Suspect]
     Active Substance: ARIPIPRAZOLE
     Indication: Bipolar disorder
     Route: 065
  6. ABILIFY [Suspect]
     Active Substance: ARIPIPRAZOLE
     Indication: Psychotic disorder
     Route: 065
  7. ABILIFY [Suspect]
     Active Substance: ARIPIPRAZOLE
     Indication: Bipolar disorder
     Route: 048
  8. ABILIFY [Suspect]
     Active Substance: ARIPIPRAZOLE
     Indication: Psychotic disorder
     Route: 048
  9. ABILIFY [Suspect]
     Active Substance: ARIPIPRAZOLE
     Indication: Bipolar disorder
     Route: 065
  10. ABILIFY [Suspect]
     Active Substance: ARIPIPRAZOLE
     Indication: Psychotic disorder
     Route: 065
  11. ABILIFY [Suspect]
     Active Substance: ARIPIPRAZOLE
     Indication: Bipolar disorder
     Route: 030
  12. ABILIFY [Suspect]
     Active Substance: ARIPIPRAZOLE
     Indication: Psychotic disorder
     Route: 030
  13. CLONAZEPAM [Suspect]
     Active Substance: CLONAZEPAM
     Indication: Bipolar disorder
     Route: 065
  14. CLONAZEPAM [Suspect]
     Active Substance: CLONAZEPAM
     Indication: Psychotic disorder
     Route: 065
  15. CLONAZEPAM [Suspect]
     Active Substance: CLONAZEPAM
     Indication: Bipolar disorder
     Route: 065
  16. CLONAZEPAM [Suspect]
     Active Substance: CLONAZEPAM
     Indication: Psychotic disorder
     Route: 065
  17. CLONAZEPAM [Suspect]
     Active Substance: CLONAZEPAM
     Indication: Bipolar disorder
     Route: 065
  18. CLONAZEPAM [Suspect]
     Active Substance: CLONAZEPAM
     Indication: Psychotic disorder
     Route: 065
  19. LEVOMEPROMAZINE [Suspect]
     Active Substance: LEVOMEPROMAZINE
     Indication: Poor quality sleep
     Route: 065
  20. LITHIUM [Suspect]
     Active Substance: LITHIUM
     Indication: Bipolar disorder
     Dosage: DAILY
     Route: 048
  21. LITHIUM [Suspect]
     Active Substance: LITHIUM
     Indication: Affective disorder
     Dosage: DAILY
     Route: 048
  22. LEVOMEPROMAZINE [Suspect]
     Active Substance: LEVOMEPROMAZINE
     Indication: Poor quality sleep
     Route: 065
  23. LEVOMEPROMAZINE [Suspect]
     Active Substance: LEVOMEPROMAZINE
     Indication: Bipolar disorder
     Route: 065
  24. OXAZEPAM [Suspect]
     Active Substance: OXAZEPAM
     Indication: Bipolar disorder
     Route: 065
  25. OXAZEPAM [Suspect]
     Active Substance: OXAZEPAM
     Indication: Poor quality sleep
     Route: 065
  26. OXAZEPAM [Suspect]
     Active Substance: OXAZEPAM
     Indication: Bipolar disorder
     Route: 065
  27. OXAZEPAM [Suspect]
     Active Substance: OXAZEPAM
     Indication: Poor quality sleep
     Route: 065
  28. TEMAZEPAM [Suspect]
     Active Substance: TEMAZEPAM
     Indication: Bipolar disorder
     Route: 065
  29. TEMAZEPAM [Suspect]
     Active Substance: TEMAZEPAM
     Indication: Poor quality sleep
     Route: 065
  30. TEMAZEPAM [Suspect]
     Active Substance: TEMAZEPAM
     Indication: Bipolar disorder
     Route: 065
  31. TEMAZEPAM [Suspect]
     Active Substance: TEMAZEPAM
     Indication: Poor quality sleep
     Route: 065
  32. ZOPICLONE [Suspect]
     Active Substance: ZOPICLONE
     Indication: Bipolar disorder
     Route: 065
  33. ZOPICLONE [Suspect]
     Active Substance: ZOPICLONE
     Indication: Poor quality sleep
     Route: 065
  34. ZOPICLONE [Suspect]
     Active Substance: ZOPICLONE
     Indication: Bipolar disorder
     Route: 065
  35. ZOPICLONE [Suspect]
     Active Substance: ZOPICLONE
     Indication: Poor quality sleep
     Route: 065
  36. VORTIOXETINE [Concomitant]
     Active Substance: VORTIOXETINE
     Indication: Antidepressant therapy
     Route: 048
  37. SERTRALINE [Concomitant]
     Active Substance: SERTRALINE HYDROCHLORIDE
     Indication: Bipolar disorder
     Route: 065
  38. LORAZEPAM [Concomitant]
     Active Substance: LORAZEPAM
     Indication: Bipolar disorder
     Route: 065
  39. BENZTROPINE MESYLATE [Concomitant]
     Active Substance: BENZTROPINE MESYLATE
     Indication: Dystonic tremor
     Dosage: DAILY
     Route: 065

REACTIONS (10)
  - Drug interaction [Unknown]
  - Muscle contracture [Recovering/Resolving]
  - Musculoskeletal stiffness [Recovering/Resolving]
  - Dystonia [Unknown]
  - Dystonic tremor [Recovering/Resolving]
  - Restlessness [Unknown]
  - Tremor [Recovering/Resolving]
  - Product use in unapproved indication [Unknown]
  - Drug ineffective [Unknown]
  - Drug interaction [Unknown]
